FAERS Safety Report 5052118-0 (Version None)
Quarter: 2006Q3

REPORT INFORMATION
  Report Type: 
  Country: None (occurrence: None)
  Receive Date: 20060711
  Receipt Date: 20060629
  Transmission Date: 20061208
  Serious: Yes (Disabling, Other)
  Sender: FDA-Public Use
  Company Number: 200610201BFR

PATIENT
  Age: 38 Year
  Sex: Male
  Weight: 96 kg

DRUGS (5)
  1. CIFLOX (CIPROFLOXACIN) [Suspect]
     Indication: PROSTATECTOMY
     Dosage: 500 MG ORAL ; 500 MG ORAL ; BID ORAL
     Route: 048
     Dates: start: 20060207, end: 20060214
  2. CIFLOX (CIPROFLOXACIN) [Suspect]
     Indication: PROSTATECTOMY
     Dosage: 500 MG ORAL ; 500 MG ORAL ; BID ORAL
     Route: 048
     Dates: start: 20060101
  3. CIFLOX (CIPROFLOXACIN) [Suspect]
     Indication: PROSTATECTOMY
     Dosage: 500 MG ORAL ; 500 MG ORAL ; BID ORAL
     Route: 048
     Dates: start: 20060101
  4. TENSTATEN [Concomitant]
  5. PANTOPRAZOLE SODIUM [Concomitant]

REACTIONS (9)
  - ARTHRALGIA [None]
  - DISEASE RECURRENCE [None]
  - LUNG INFECTION [None]
  - PROSTATITIS [None]
  - PYREXIA [None]
  - RASH GENERALISED [None]
  - TENDON DISORDER [None]
  - TENDONITIS [None]
  - VASCULAR PURPURA [None]
